FAERS Safety Report 21870672 (Version 1)
Quarter: 2023Q1

REPORT INFORMATION
  Report Type: Spontaneous
  Country: US (occurrence: None)
  Receive Date: 20230113
  Receipt Date: 20230113
  Transmission Date: 20230418
  Serious: No
  Sender: FDA-Public Use
  Company Number: None

PATIENT
  Sex: Female

DRUGS (1)
  1. OPSUMIT [Suspect]
     Active Substance: MACITENTAN
     Indication: Pulmonary hypertension
     Dosage: FREQUENCY : DAILY;?
     Route: 048
     Dates: start: 20221205

REACTIONS (9)
  - Presyncope [None]
  - Burning sensation [None]
  - Flushing [None]
  - Hyperhidrosis [None]
  - Headache [None]
  - Pain [None]
  - Nausea [None]
  - Vomiting [None]
  - Dyspepsia [None]
